FAERS Safety Report 23728971 (Version 1)
Quarter: 2024Q2

REPORT INFORMATION
  Report Type: Report from Study
  Country: CA (occurrence: CA)
  Receive Date: 20240410
  Receipt Date: 20240410
  Transmission Date: 20240715
  Serious: Yes (Other)
  Sender: FDA-Public Use
  Company Number: CA-TAKEDA-2024TUS032997

PATIENT
  Age: 66 Year
  Sex: Female

DRUGS (2)
  1. VEDOLIZUMAB [Suspect]
     Active Substance: VEDOLIZUMAB
     Indication: Colitis ulcerative
     Dosage: 300 MILLIGRAM
     Route: 042
     Dates: start: 20240326
  2. RENFLEXIS [Concomitant]
     Active Substance: INFLIXIMAB-ABDA
     Dosage: UNK
     Dates: start: 202303

REACTIONS (4)
  - Nephrolithiasis [Unknown]
  - Frequent bowel movements [Unknown]
  - Lymphadenopathy [Unknown]
  - Fatigue [Unknown]

NARRATIVE: CASE EVENT DATE: 20240328
